FAERS Safety Report 5904527-2 (Version None)
Quarter: 2008Q3

REPORT INFORMATION
  Report Type: 
  Country: None (occurrence: None)
  Receive Date: 20080930
  Receipt Date: 20080930
  Transmission Date: 20090109
  Serious: Yes (Hospitalization)
  Sender: FDA-Public Use
  Company Number: None

PATIENT
  Sex: Male
  Weight: 88 kg

DRUGS (6)
  1. TEMOZOLOMIDE [Suspect]
     Indication: ACUTE MYELOID LEUKAEMIA
     Dosage: 100MG/M2 QD PO 200MG/M2 (INDUCTION) QD PO
     Route: 048
     Dates: start: 20080801, end: 20080814
  2. TEMOZOLOMIDE [Suspect]
     Indication: ACUTE MYELOID LEUKAEMIA
     Dosage: 100MG/M2 QD PO 200MG/M2 (INDUCTION) QD PO
     Route: 048
     Dates: start: 20080815, end: 20080821
  3. KEFLEX [Concomitant]
  4. DOXYCYCLINE [Concomitant]
  5. XANAX [Concomitant]
  6. PROZAC [Concomitant]

REACTIONS (3)
  - BURSITIS INFECTIVE [None]
  - MYELODYSPLASTIC SYNDROME [None]
  - NAUSEA [None]
